FAERS Safety Report 7689691 (Version 2)
Quarter: 2013Q1

REPORT INFORMATION
  Report Type: Spontaneous
  Country: FI (occurrence: None)
  Receive Date: 20101104
  Receipt Date: 20121226
  Transmission Date: 20140127
  Serious: Yes (Hospitalization, Other)
  Sender: FDA-Public Use
  Company Number: 2010FI0040

PATIENT
  Age: 6 Year
  Sex: Male

DRUGS (2)
  1. ORFADIN [Suspect]
     Indication: TYROSINAEMIA
     Dosage: 24 MG (24 MG, 1 IN 1 D)
     Dates: start: 20060410, end: 20110817
  2. ADURSAL (URSODEOXYCHOLIC ACID) [Concomitant]

REACTIONS (5)
  - Alpha 1 foetoprotein increased [None]
  - Hepatocellular carcinoma [None]
  - Liver transplant [None]
  - Amino acid level increased [None]
  - No therapeutic response [None]
